FAERS Safety Report 7797002-4 (Version None)
Quarter: 2011Q4

REPORT INFORMATION
  Report Type: 
  Country: None (occurrence: None)
  Receive Date: 20111005
  Receipt Date: 20111005
  Transmission Date: 20120403
  Serious: Yes (Other)
  Sender: FDA-Public Use
  Company Number: None

PATIENT
  Sex: Male
  Weight: 63.502 kg

DRUGS (1)
  1. CLINDAMYCIN HCL [Suspect]
     Indication: BONE SWELLING
     Dosage: 150MG
     Route: 048
     Dates: start: 20100423, end: 20100430

REACTIONS (4)
  - WEIGHT DECREASED [None]
  - DIARRHOEA [None]
  - HAEMORRHOIDS [None]
  - ANXIETY [None]
